FAERS Safety Report 4869491-6 (Version None)
Quarter: 2005Q4

REPORT INFORMATION
  Report Type: 
  Country: None (occurrence: None)
  Receive Date: 20051230
  Receipt Date: 20051222
  Transmission Date: 20060501
  Serious: Yes (Other)
  Sender: FDA-Public Use
  Company Number: DE-BRISTOL-MYERS SQUIBB COMPANY-13228606

PATIENT
  Age: 54 Year
  Sex: Female

DRUGS (1)
  1. AVAPRO [Suspect]
     Indication: HYPERTENSION
     Dosage: TEMPORARILY INTERRUPTED 20-DEC-2005 AND RESTARTED IN DEC-2005
     Route: 048
     Dates: start: 19980101

REACTIONS (1)
  - ANAEMIA [None]
